FAERS Safety Report 11644932 (Version 3)
Quarter: 2018Q4

REPORT INFORMATION
  Report Type: Spontaneous
  Country: US (occurrence: US)
  Receive Date: 20151020
  Receipt Date: 20181212
  Transmission Date: 20190204
  Serious: No
  Sender: FDA-Public Use
  Company Number: US-PFIZER INC-2015347787

PATIENT
  Age: 62 Year
  Sex: Female
  Weight: 68 kg

DRUGS (2)
  1. LYRICA [Suspect]
     Active Substance: PREGABALIN
     Indication: NEUROPATHY PERIPHERAL
     Dosage: 75 MG, 3X/DAY
     Route: 048
     Dates: start: 1996
  2. LYRICA [Suspect]
     Active Substance: PREGABALIN
     Indication: POLYNEUROPATHY
     Dosage: 75 MG, 3X/DAY, (1 CAPSULE BY MOUTH THREE TIMES DAILY)
     Route: 048
     Dates: start: 20181024

REACTIONS (1)
  - Joint stiffness [Not Recovered/Not Resolved]
